FAERS Safety Report 18577007 (Version 1)
Quarter: 2020Q4

REPORT INFORMATION
  Report Type: Report from Study
  Country: US (occurrence: US)
  Receive Date: 20201203
  Receipt Date: 20201203
  Transmission Date: 20210114
  Serious: Yes (Other)
  Sender: FDA-Public Use
  Company Number: US-TAKEDA-2019TUS058255

PATIENT
  Sex: Male

DRUGS (9)
  1. PONATINIB [Suspect]
     Active Substance: PONATINIB
     Dosage: 15 MILLIGRAM, QD
     Route: 048
     Dates: start: 201910
  2. SUCRALFATE. [Concomitant]
     Active Substance: SUCRALFATE
     Dosage: UNK
     Route: 065
  3. ZOFRAN [Concomitant]
     Active Substance: ONDANSETRON HYDROCHLORIDE
     Dosage: UNK
     Route: 065
  4. PONATINIB [Suspect]
     Active Substance: PONATINIB
     Indication: ACUTE LYMPHOCYTIC LEUKAEMIA
     Dosage: 30 MILLIGRAM, QD
     Route: 048
     Dates: start: 201910
  5. PONATINIB [Suspect]
     Active Substance: PONATINIB
     Dosage: 30 MILLIGRAM, QD
     Route: 048
  6. XOPENEX [Concomitant]
     Active Substance: LEVALBUTEROL HYDROCHLORIDE
     Dosage: UNK
     Route: 065
  7. MIRALAX [Concomitant]
     Active Substance: POLYETHYLENE GLYCOL 3350
     Dosage: UNK
     Route: 065
  8. CLONAZEPAM. [Concomitant]
     Active Substance: CLONAZEPAM
     Dosage: UNK
     Route: 065
  9. BENADRYL ALLERGY [Concomitant]
     Active Substance: DIPHENHYDRAMINE HYDROCHLORIDE
     Dosage: UNK
     Route: 065

REACTIONS (20)
  - Acute lymphocytic leukaemia [Unknown]
  - Pain in extremity [Unknown]
  - Anxiety [Unknown]
  - Panic attack [Unknown]
  - Sinusitis [Unknown]
  - Pain [Unknown]
  - Nausea [Unknown]
  - Constipation [Unknown]
  - Influenza like illness [Unknown]
  - Asthma [Unknown]
  - Rhinitis allergic [Unknown]
  - Headache [Unknown]
  - Dizziness [Unknown]
  - Cough [Unknown]
  - Myalgia [Unknown]
  - Fatigue [Unknown]
  - Product dose omission issue [Unknown]
  - Respiratory tract congestion [Not Recovered/Not Resolved]
  - Cytogenetic abnormality [Unknown]
  - Chest pain [Unknown]
